FAERS Safety Report 6209962-3 (Version None)
Quarter: 2009Q2

REPORT INFORMATION
  Report Type: 
  Country: None (occurrence: None)
  Receive Date: 20090601
  Receipt Date: 20090520
  Transmission Date: 20091009
  Serious: Yes (Other)
  Sender: FDA-Public Use
  Company Number: GB-PFIZER INC-2009215651

PATIENT
  Age: 29 Year

DRUGS (3)
  1. CLINDAMYCIN PHOSPHATE [Suspect]
     Indication: ACNE
     Dosage: 1 DF, 1X/DAY
     Route: 061
     Dates: start: 20090501, end: 20090503
  2. BENZOYL PEROXIDE [Suspect]
     Indication: ACNE
     Dosage: 1 DF, 1X/DAY
     Route: 061
     Dates: start: 20090501, end: 20090503
  3. CITALOPRAM [Concomitant]
     Indication: DEPRESSION
     Dosage: 20 MG, UNK
     Route: 048
     Dates: start: 20090305

REACTIONS (5)
  - APPLICATION SITE REACTION [None]
  - EYELID OEDEMA [None]
  - PERIORBITAL OEDEMA [None]
  - RASH PUSTULAR [None]
  - SWELLING FACE [None]
